FAERS Safety Report 13975619 (Version 1)
Quarter: 2017Q3

REPORT INFORMATION
  Report Type: Spontaneous
  Country: US (occurrence: US)
  Receive Date: 20170915
  Receipt Date: 20170915
  Transmission Date: 20171128
  Serious: Yes (Hospitalization, Other)
  Sender: FDA-Public Use
  Company Number: US-BAYER-2017-172227

PATIENT
  Age: 52 Year
  Sex: Female

DRUGS (4)
  1. ACETYLSALICYLIC ACID({=100 MG) [Suspect]
     Active Substance: ASPIRIN
     Dosage: UNK, QD
  2. LISINOPRIL. [Suspect]
     Active Substance: LISINOPRIL
     Dosage: UNK, QD
  3. ATORVASTATIN [Suspect]
     Active Substance: ATORVASTATIN
     Dosage: UNK, QD
  4. METOPROLOL. [Suspect]
     Active Substance: METOPROLOL
     Dosage: UNK, QD

REACTIONS (2)
  - Coronary artery dissection [None]
  - Procedural haemorrhage [None]
